FAERS Safety Report 9333231 (Version 1)
Quarter: 2013Q2

REPORT INFORMATION
  Report Type: Spontaneous
  Country: US (occurrence: US)
  Receive Date: 20130606
  Receipt Date: 20130606
  Transmission Date: 20140414
  Serious: Yes (Other)
  Sender: FDA-Public Use
  Company Number: US-ELI_LILLY_AND_COMPANY-US201305009253

PATIENT
  Age: 86 Year
  Sex: Female

DRUGS (2)
  1. FORTEO [Suspect]
     Indication: BONE DISORDER
     Dosage: UNK, QD
     Dates: end: 201303
  2. CALCIUM [Concomitant]
     Dosage: UNK
     Dates: end: 201303

REACTIONS (2)
  - Foot deformity [Unknown]
  - Blood calcium increased [Unknown]
